FAERS Safety Report 4606259-X (Version None)
Quarter: 2005Q1

REPORT INFORMATION
  Report Type: 
  Country: None (occurrence: None)
  Receive Date: 20050116
  Receipt Date: 20040810
  Transmission Date: 20050727
  Serious: Yes (Other)
  Sender: FDA-Public Use
  Company Number: HQWYE186811AUG04

PATIENT
  Sex: 0

DRUGS (1)
  1. EFFEXOR [Suspect]

REACTIONS (3)
  - AGRANULOCYTOSIS [None]
  - CONTUSION [None]
  - PLATELET COUNT DECREASED [None]
